FAERS Safety Report 7351750-9 (Version None)
Quarter: 2011Q1

REPORT INFORMATION
  Report Type: 
  Country: None (occurrence: None)
  Receive Date: 20110315
  Receipt Date: 20110303
  Transmission Date: 20110831
  Serious: No
  Sender: FDA-Public Use
  Company Number: US-JNJFOC-20110302595

PATIENT
  Sex: Male
  Weight: 92.08 kg

DRUGS (8)
  1. OXYCODONE HCL [Concomitant]
     Indication: PAIN
     Route: 065
  2. VITAMIN TAB [Concomitant]
     Indication: NUTRITIONAL SUPPORT
     Route: 065
  3. ANTIDEPRESSANT [Concomitant]
     Indication: DEPRESSION
     Route: 065
  4. SOMA [Concomitant]
     Indication: MUSCLE RELAXANT THERAPY
     Route: 065
  5. FLOMAX [Concomitant]
     Indication: POLLAKIURIA
     Route: 065
  6. VALIUM [Concomitant]
     Route: 065
  7. FENTANYL-100 [Suspect]
     Indication: PAIN
     Route: 062
  8. ASPIRIN [Concomitant]
     Route: 065

REACTIONS (2)
  - WRONG TECHNIQUE IN DRUG USAGE PROCESS [None]
  - INAPPROPRIATE SCHEDULE OF DRUG ADMINISTRATION [None]
